FAERS Safety Report 23330597 (Version 1)
Quarter: 2023Q4

REPORT INFORMATION
  Report Type: Spontaneous
  Country: GB (occurrence: GB)
  Receive Date: 20231222
  Receipt Date: 20231222
  Transmission Date: 20240109
  Serious: Yes (Other)
  Sender: FDA-Public Use
  Company Number: None

PATIENT
  Age: 75 Year
  Sex: Male
  Weight: 75 kg

DRUGS (9)
  1. RAMIPRIL [Suspect]
     Active Substance: RAMIPRIL
     Indication: Product used for unknown indication
     Dosage: (REVIEW BP IN 2 WEEKS)
     Route: 048
     Dates: start: 20231117
  2. INFLUENZA VIRUS VACCINE [Concomitant]
     Active Substance: INFLUENZA VIRUS VACCINE
     Dates: start: 20231026, end: 20231026
  3. ASPIRIN [Concomitant]
     Active Substance: ASPIRIN
     Dates: start: 20230324
  4. BRINZOLAMIDE [Concomitant]
     Active Substance: BRINZOLAMIDE
     Dosage: INTO LEFT EYE
     Dates: start: 20230324
  5. CANDESARTAN [Concomitant]
     Active Substance: CANDESARTAN
     Indication: Blood pressure measurement
     Dosage: (REVIEW BP IN 2 WE...
     Dates: start: 20231206
  6. ISOSORBIDE MONONITRATE [Concomitant]
     Active Substance: ISOSORBIDE MONONITRATE
     Dates: start: 20230324
  7. LATANOPROST [Concomitant]
     Active Substance: LATANOPROST
     Dosage: EACH EYE
     Dates: start: 20230324
  8. NEBIVOLOL [Concomitant]
     Active Substance: NEBIVOLOL
     Dates: start: 20230324
  9. ROSUVASTATIN [Concomitant]
     Active Substance: ROSUVASTATIN
     Dosage: NIGHT
     Dates: start: 20230324

REACTIONS (1)
  - Abdominal discomfort [Recovered/Resolved]
